FAERS Safety Report 9912514 (Version 6)
Quarter: 2020Q1

REPORT INFORMATION
  Report Type: Spontaneous
  Country: CA (occurrence: CA)
  Receive Date: 20140220
  Receipt Date: 20200212
  Transmission Date: 20200409
  Serious: Yes (Other)
  Sender: FDA-Public Use
  Company Number: CA-ALEXION PHARMACEUTICALS INC.-A201400507

PATIENT
  Age: 19 Year
  Sex: Female

DRUGS (1)
  1. SOLIRIS [Suspect]
     Active Substance: ECULIZUMAB
     Indication: ATYPICAL HAEMOLYTIC URAEMIC SYNDROME
     Dosage: 900 MG, Q2W
     Route: 042

REACTIONS (5)
  - Aspergillus infection [Recovered/Resolved]
  - Enterococcal infection [Recovered/Resolved]
  - Peritonitis bacterial [Recovered/Resolved]
  - Escherichia peritonitis [Recovered/Resolved]
  - Fungal peritonitis [Recovered/Resolved]
